FAERS Safety Report 25332541 (Version 1)
Quarter: 2025Q2

REPORT INFORMATION
  Report Type: Spontaneous
  Country: US (occurrence: None)
  Receive Date: 20250519
  Receipt Date: 20250519
  Transmission Date: 20250717
  Serious: No
  Sender: INCYTE
  Company Number: US-002147023-NVSC2025US067364

PATIENT
  Age: 11 Year

DRUGS (4)
  1. JAKAFI [Suspect]
     Active Substance: RUXOLITINIB
     Indication: Growth failure
     Dosage: 10 MG, BID (INITIALLY)
     Route: 065
  2. JAKAFI [Suspect]
     Active Substance: RUXOLITINIB
     Indication: Diarrhoea
     Dosage: 12.5 MG, BID
     Route: 065
  3. JAKAFI [Suspect]
     Active Substance: RUXOLITINIB
     Indication: Mucocutaneous candidiasis
     Dosage: 10 MG, QD
     Route: 065
  4. JAKAFI [Suspect]
     Active Substance: RUXOLITINIB
     Indication: Immune system disorder

REACTIONS (1)
  - Drug effective for unapproved indication [Unknown]
